FAERS Safety Report 9542515 (Version 2)
Quarter: 2013Q4

REPORT INFORMATION
  Report Type: Spontaneous
  Country: US (occurrence: US)
  Receive Date: 20130919
  Receipt Date: 20131108
  Transmission Date: 20140711
  Serious: Yes (Other)
  Sender: FDA-Public Use
  Company Number: US-PFIZER INC-2013267636

PATIENT
  Age: 67 Year
  Sex: Female
  Weight: 87.53 kg

DRUGS (1)
  1. LYRICA [Suspect]
     Indication: FIBROMYALGIA
     Dosage: 100 MG, 3X/DAY
     Route: 048
     Dates: start: 20101005

REACTIONS (3)
  - Fall [Unknown]
  - Foot fracture [Unknown]
  - Wrist fracture [Unknown]
